FAERS Safety Report 5743059-1 (Version None)
Quarter: 2008Q2

REPORT INFORMATION
  Report Type: 
  Country: None (occurrence: None)
  Receive Date: 20080519
  Receipt Date: 20080515
  Transmission Date: 20081010
  Serious: Yes (Hospitalization, Other)
  Sender: FDA-Public Use
  Company Number: TH-BRISTOL-MYERS SQUIBB COMPANY-14088876

PATIENT
  Age: 68 Year
  Sex: Female

DRUGS (18)
  1. ABATACEPT [Suspect]
     Indication: RHEUMATOID ARTHRITIS
     Dosage: 22MAY03-22APR04 500MG/MO(NO OF COURSES 14), 20MAY04-28DEC07 500MG/MO (NO OF COURSES 48)
     Route: 042
     Dates: start: 20040520, end: 20071228
  2. FOLIC ACID [Concomitant]
     Dates: start: 20021105
  3. CALTRATE [Concomitant]
     Dates: start: 20041111
  4. ALFACALCIDOL [Concomitant]
     Dates: start: 20060519
  5. AMLODIPINE [Concomitant]
     Dates: start: 20061005
  6. SULFASALAZINE [Concomitant]
     Dates: start: 20061005
  7. PREDNISOLONE [Concomitant]
     Dates: start: 20061201
  8. VITAMIN B COMPLEX CAP [Concomitant]
     Dosage: 2 DOSAGE FORM=2 TABS
     Dates: start: 20070126
  9. ACETAMINOPHEN [Concomitant]
     Dosage: 500MG PRN/D
     Dates: start: 20070810
  10. ACETYLCYSTEINE [Concomitant]
     Dates: start: 20070924
  11. CELECOXIB [Concomitant]
     Dosage: 200MG PRN/D FROM 01NOV07-19MAR08, 200MG/D FROM 20MAR08-CONT
     Dates: start: 20071101
  12. CELLUFRESH [Concomitant]
     Dosage: EYE DROPS; 1 DROP PRN/D
     Dates: start: 20070106
  13. VIDISIC [Concomitant]
     Dosage: EYE GEL;1 DROP PRN/D
     Dates: start: 20070223
  14. ISONIAZID [Concomitant]
     Dates: start: 20080320
  15. RIFAMPICIN [Concomitant]
     Dates: start: 20080320
  16. ETHAMBUTOL HYDROCHLORIDE [Concomitant]
     Dates: start: 20080320
  17. PYRAZINAMIDE [Concomitant]
     Dates: start: 20080320
  18. VITAMIN B6 [Concomitant]
     Dates: start: 20080320

REACTIONS (2)
  - PULMONARY TUBERCULOSIS [None]
  - PYREXIA [None]
